FAERS Safety Report 25637141 (Version 2)
Quarter: 2025Q3

REPORT INFORMATION
  Report Type: Spontaneous
  Country: GB (occurrence: GB)
  Receive Date: 20250804
  Receipt Date: 20250930
  Transmission Date: 20251020
  Serious: Yes (Hospitalization)
  Sender: AMGEN
  Company Number: GB-PFIZER INC-PV202500091495

PATIENT
  Age: 80 Year
  Sex: Female

DRUGS (1)
  1. ENBREL [Suspect]
     Active Substance: ETANERCEPT
     Indication: Rheumatoid arthritis
     Dosage: 50 MG, WEEKLY (EW)
     Route: 058

REACTIONS (5)
  - Fall [Unknown]
  - Rib fracture [Unknown]
  - Feeling abnormal [Unknown]
  - Malaise [Unknown]
  - Wound infection [Unknown]

NARRATIVE: CASE EVENT DATE: 20250101
